FAERS Safety Report 8171509-2 (Version None)
Quarter: 2012Q1

REPORT INFORMATION
  Report Type: 
  Country: None (occurrence: None)
  Receive Date: 20120228
  Receipt Date: 20120221
  Transmission Date: 20120608
  Serious: Yes (Other)
  Sender: FDA-Public Use
  Company Number: US-CELGENEUS-163-21880-12022442

PATIENT
  Sex: Female

DRUGS (16)
  1. REVLIMID [Suspect]
     Dosage: 15 MILLIGRAM
     Route: 048
     Dates: start: 20091001
  2. CITALOPRAM HYDROBROMIDE [Concomitant]
     Dosage: 10 MILLIGRAM
     Route: 048
     Dates: start: 20100603
  3. N/M ESSENTIAL MULTI WOMAN [Concomitant]
     Route: 065
     Dates: start: 20090108
  4. KONSYL [Concomitant]
     Route: 065
     Dates: start: 20090108
  5. VITAMIN B-12 [Concomitant]
     Dosage: 1000 MICROGRAM
     Route: 048
     Dates: start: 20090108
  6. ZOMETA [Concomitant]
     Dosage: 4MG/5ML
     Route: 050
     Dates: start: 20090331
  7. CITRACAL + D [Concomitant]
     Route: 048
     Dates: start: 20090108
  8. REVLIMID [Suspect]
     Dosage: 10 MILLIGRAM
     Route: 048
     Dates: start: 20100201, end: 20120213
  9. MULTI FOR HER [Concomitant]
     Route: 065
     Dates: start: 20090108
  10. PROCRIT [Concomitant]
     Route: 065
  11. NASONEX [Concomitant]
     Dosage: 50 MICROGRAM
     Route: 045
  12. PREMARIN [Concomitant]
     Dosage: .625 MILLIGRAM
     Route: 067
     Dates: start: 20090108
  13. PROTONIX [Concomitant]
     Dosage: 20 MILLIGRAM
     Route: 048
     Dates: start: 20090331
  14. ASPIRIN [Concomitant]
     Dosage: 81 MILLIGRAM
     Route: 048
     Dates: start: 20090108
  15. REVLIMID [Suspect]
     Indication: MULTIPLE MYELOMA
     Dosage: 25 MILLIGRAM
     Route: 048
     Dates: start: 20080401
  16. ENABLEX [Concomitant]
     Dosage: 1
     Route: 048

REACTIONS (1)
  - ARTHROPATHY [None]
